FAERS Safety Report 5228211-6 (Version None)
Quarter: 2007Q1

REPORT INFORMATION
  Report Type: 
  Country: None (occurrence: None)
  Receive Date: 20070205
  Receipt Date: 20070125
  Transmission Date: 20070707
  Serious: Yes (Hospitalization)
  Sender: FDA-Public Use
  Company Number: US-JNJFOC-20070107283

PATIENT
  Age: 63 Year
  Sex: Male
  Weight: 90.72 kg

DRUGS (5)
  1. FENTANYL TRANSDERMAL SYSTEM [Suspect]
     Route: 062
  2. FENTANYL TRANSDERMAL SYSTEM [Suspect]
     Indication: PAIN
     Route: 062
  3. LYRICA [Concomitant]
     Indication: NEURALGIA
     Route: 048
  4. PROVIGIL [Concomitant]
     Indication: SOMNOLENCE
     Route: 048
  5. DIOVAN [Concomitant]
     Indication: BLOOD PRESSURE
     Route: 048

REACTIONS (6)
  - FEELING ABNORMAL [None]
  - HYPERHIDROSIS [None]
  - INADEQUATE ANALGESIA [None]
  - NAUSEA [None]
  - NERVOUSNESS [None]
  - SPINAL LAMINECTOMY [None]
